FAERS Safety Report 7402605-2 (Version None)
Quarter: 2011Q1

REPORT INFORMATION
  Report Type: 
  Country: None (occurrence: None)
  Receive Date: 20110331
  Receipt Date: 20110317
  Transmission Date: 20110831
  Serious: No
  Sender: FDA-Public Use
  Company Number: 2011P1004621

PATIENT
  Age: 33 Year
  Sex: Female
  Weight: 55.7924 kg

DRUGS (3)
  1. PAXIL [Concomitant]
  2. PUBLIX HYDROCORTISONE CREAM 1% WITH MOISTURIZERS, 1 OZ (NO PREF. NAME) [Suspect]
     Indication: SKIN DISORDER
     Dosage: X1 ; TOP
     Route: 061
     Dates: start: 20110222, end: 20110222
  3. PUBLIX HYDROCORTISONE CREAM 1% WITH MOISTURIZERS, 1 OZ (NO PREF. NAME) [Suspect]
     Indication: PRURITUS
     Dosage: X1 ; TOP
     Route: 061
     Dates: start: 20110222, end: 20110222

REACTIONS (4)
  - APPLICATION SITE INFLAMMATION [None]
  - APPLICATION SITE SCAB [None]
  - CHEMICAL INJURY [None]
  - REACTION TO DRUG EXCIPIENTS [None]
